FAERS Safety Report 8955183 (Version 1)
Quarter: 2012Q4

REPORT INFORMATION
  Report Type: 
  Country: US (occurrence: US)
  Receive Date: 20121210
  Receipt Date: 20121210
  Transmission Date: 20130627
  Serious: Yes (Other)
  Sender: FDA-Public Use
  Company Number: US-BIOGENIDEC-2012BI057771

PATIENT
  Sex: Female

DRUGS (1)
  1. AVONEX [Suspect]
     Indication: MULTIPLE SCLEROSIS
     Route: 030
     Dates: start: 20091001, end: 20120903

REACTIONS (4)
  - Bone marrow transplant [Unknown]
  - Chemotherapy [Unknown]
  - Type 1 diabetes mellitus [Unknown]
  - Influenza like illness [Unknown]
